FAERS Safety Report 9761549 (Version 1)
Quarter: 2013Q4

REPORT INFORMATION
  Report Type: Spontaneous
  Country: US (occurrence: US)
  Receive Date: 20131216
  Receipt Date: 20131216
  Transmission Date: 20140711
  Serious: No
  Sender: FDA-Public Use
  Company Number: US-ABBVIE-13P-163-1088136-00

PATIENT
  Age: 73 Year
  Sex: Female
  Weight: 56.75 kg

DRUGS (2)
  1. PROMETRIUM [Suspect]
     Indication: PROGESTERONE DECREASED
     Dosage: AT BEDTIME
     Route: 048
     Dates: start: 2010, end: 2013
  2. PROMETRIUM [Suspect]
     Dosage: PROGESTERONE - AT BEDTIME
     Route: 048
     Dates: start: 20130423

REACTIONS (2)
  - Drug ineffective [Not Recovered/Not Resolved]
  - Product physical issue [Unknown]
